FAERS Safety Report 5535013-X (Version None)
Quarter: 2007Q4

REPORT INFORMATION
  Report Type: 
  Country: None (occurrence: None)
  Receive Date: 20071205
  Receipt Date: 20071127
  Transmission Date: 20080405
  Serious: Yes (Death, Hospitalization, Other)
  Sender: FDA-Public Use
  Company Number: US-MERCK-0711USA05060

PATIENT
  Age: 65 Year
  Sex: Male

DRUGS (5)
  1. DECADRON [Suspect]
     Indication: MULTIPLE MYELOMA
     Route: 048
     Dates: start: 20060920, end: 20060101
  2. THALOMID [Suspect]
     Indication: MULTIPLE MYELOMA
     Route: 048
     Dates: start: 20041122, end: 20050411
  3. THALOMID [Suspect]
     Route: 048
     Dates: start: 20060920, end: 20060901
  4. AREDIA [Concomitant]
     Route: 065
     Dates: start: 20041101
  5. ARANESP [Concomitant]
     Indication: ANAEMIA
     Route: 065

REACTIONS (11)
  - ANAEMIA [None]
  - CONFUSIONAL STATE [None]
  - DISEASE PROGRESSION [None]
  - HALLUCINATION [None]
  - MULTIPLE MYELOMA [None]
  - OEDEMA PERIPHERAL [None]
  - PLASMABLASTIC LYMPHOMA [None]
  - PYREXIA [None]
  - SUBCUTANEOUS ABSCESS [None]
  - THROMBOCYTOPENIA [None]
  - VISION BLURRED [None]
